FAERS Safety Report 8119821-7 (Version None)
Quarter: 2012Q1

REPORT INFORMATION
  Report Type: 
  Country: None (occurrence: None)
  Receive Date: 20120207
  Receipt Date: 20120131
  Transmission Date: 20120608
  Serious: Yes (Other)
  Sender: FDA-Public Use
  Company Number: JP-EISAI INC-E2020-10289-SPO-JP

PATIENT
  Age: 76 Year
  Sex: Male

DRUGS (2)
  1. ARICEPT [Suspect]
     Route: 048
     Dates: start: 20111028, end: 20111212
  2. ARICEPT [Suspect]
     Indication: DEMENTIA ALZHEIMER'S TYPE
     Route: 048
     Dates: start: 20111018, end: 20111027

REACTIONS (1)
  - VENTRICULAR TACHYCARDIA [None]
